FAERS Safety Report 7954752-4 (Version None)
Quarter: 2011Q4

REPORT INFORMATION
  Report Type: 
  Country: None (occurrence: None)
  Receive Date: 20111202
  Receipt Date: 20111129
  Transmission Date: 20120403
  Serious: Yes (Other)
  Sender: FDA-Public Use
  Company Number: CA-ROCHE-1017694

PATIENT
  Sex: Male
  Weight: 61 kg

DRUGS (5)
  1. METHOTREXATE [Concomitant]
  2. VITAMIN D [Concomitant]
  3. OMEGA 3-6-9 [Concomitant]
  4. PLAQUENIL [Concomitant]
  5. ACTEMRA [Suspect]
     Indication: RHEUMATOID ARTHRITIS
     Route: 042
     Dates: start: 20110124, end: 20111017

REACTIONS (1)
  - INGUINAL HERNIA [None]
